FAERS Safety Report 4973909-8 (Version None)
Quarter: 2006Q2

REPORT INFORMATION
  Report Type: 
  Country: None (occurrence: None)
  Receive Date: 20060410
  Receipt Date: 20060328
  Transmission Date: 20061013
  Serious: Yes (Hospitalization, Other)
  Sender: FDA-Public Use
  Company Number: HQWYE644214JAN05

PATIENT
  Age: 24 Year
  Sex: Female
  Weight: 88 kg

DRUGS (5)
  1. MYLOTARG [Suspect]
     Indication: ACUTE MYELOID LEUKAEMIA
     Dosage: 18 MG 1X PER 1 DAY, INTRAVENOUS
     Route: 042
     Dates: start: 20041216, end: 20041216
  2. TYLENOL [Concomitant]
  3. VORICONAZOLE (VORICONAZOLE) [Concomitant]
  4. VANCOMYCIN [Concomitant]
  5. VALTREX [Concomitant]

REACTIONS (16)
  - ABDOMINAL PAIN UPPER [None]
  - ALANINE AMINOTRANSFERASE INCREASED [None]
  - ASCITES [None]
  - ASPARTATE AMINOTRANSFERASE INCREASED [None]
  - BLOOD ALKALINE PHOSPHATASE INCREASED [None]
  - BLOOD LACTATE DEHYDROGENASE INCREASED [None]
  - BODY TEMPERATURE INCREASED [None]
  - EPISTAXIS [None]
  - FATIGUE [None]
  - GALLBLADDER DISORDER [None]
  - HEPATOMEGALY [None]
  - HYPERBILIRUBINAEMIA [None]
  - NAUSEA [None]
  - THROMBOCYTOPENIA [None]
  - URINE COLOUR ABNORMAL [None]
  - WEIGHT INCREASED [None]
